FAERS Safety Report 20289859 (Version 1)
Quarter: 2022Q1

REPORT INFORMATION
  Report Type: Spontaneous
  Country: US (occurrence: None)
  Receive Date: 20220103
  Receipt Date: 20220103
  Transmission Date: 20220423
  Serious: Yes (Other)
  Sender: FDA-Public Use
  Company Number: None

PATIENT
  Age: 19 Year
  Sex: Female
  Weight: 80.3 kg

DRUGS (3)
  1. BAMLANIVIMAB\ETESEVIMAB [Suspect]
     Active Substance: BAMLANIVIMAB\ETESEVIMAB
     Indication: COVID-19
     Dates: start: 20211223, end: 20211223
  2. Tylenol 650mg PO X 1 [Concomitant]
     Dates: start: 20211223, end: 20211223
  3. Benadryl 50mg PO X 1 [Concomitant]
     Dates: start: 20211223, end: 20211223

REACTIONS (3)
  - Feeling hot [None]
  - Dizziness [None]
  - Dyspnoea [None]

NARRATIVE: CASE EVENT DATE: 20211223
